FAERS Safety Report 6670831-6 (Version None)
Quarter: 2010Q2

REPORT INFORMATION
  Report Type: 
  Country: None (occurrence: None)
  Receive Date: 20100407
  Receipt Date: 20100401
  Transmission Date: 20101027
  Serious: Yes (Hospitalization)
  Sender: FDA-Public Use
  Company Number: US-BAYER-201018302NA

PATIENT
  Age: 29 Year
  Sex: Male

DRUGS (1)
  1. AVELOX [Suspect]
     Indication: NASOPHARYNGITIS
     Dates: start: 20100328, end: 20100331

REACTIONS (3)
  - DERMATITIS BULLOUS [None]
  - OEDEMA PERIPHERAL [None]
  - PRESYNCOPE [None]
